FAERS Safety Report 17146090 (Version 7)
Quarter: 2020Q2

REPORT INFORMATION
  Report Type: Report from Study
  Country: CZ (occurrence: CZ)
  Receive Date: 20191212
  Receipt Date: 20200519
  Transmission Date: 20200713
  Serious: Yes (Hospitalization)
  Sender: FDA-Public Use
  Company Number: CZ-VERTEX PHARMACEUTICALS-2019-012394

PATIENT
  Age: 18 Year
  Sex: Female
  Weight: 54 kg

DRUGS (14)
  1. TOBI [Concomitant]
     Active Substance: TOBRAMYCIN
     Indication: PSEUDOMONAS TEST POSITIVE
     Dosage: UNK, BID
  2. ORKAMBI [Suspect]
     Active Substance: IVACAFTOR\LUMACAFTOR
     Indication: CYSTIC FIBROSIS
     Dosage: 400/250 MG, BID
     Route: 048
     Dates: start: 20140304, end: 20191204
  3. VIGANTOL [COLECALCIFEROL] [Concomitant]
     Active Substance: CHOLECALCIFEROL
     Indication: PANCREATIC FAILURE
     Dosage: 10 GTT, QD
     Route: 048
     Dates: start: 2001
  4. ORKAMBI [Suspect]
     Active Substance: IVACAFTOR\LUMACAFTOR
     Dosage: 400/250 MG, BID
     Route: 048
     Dates: start: 20200122, end: 20200207
  5. VITAMIN A [RETINOL] [Concomitant]
     Active Substance: RETINOL
     Indication: PANCREATIC FAILURE
     Dosage: 30000 INTERNATIONAL UNIT, 5 TIMES A WEEK
     Route: 048
     Dates: start: 2001
  6. NACL [Concomitant]
     Active Substance: SODIUM CHLORIDE
     Indication: CYSTIC FIBROSIS LUNG
     Dosage: 2 MILLILITER, TID
  7. PULMOZYME [Concomitant]
     Active Substance: DORNASE ALFA
     Indication: CYSTIC FIBROSIS LUNG
     Dosage: 2.5 MILLILITER, QD
     Dates: start: 2001
  8. VITAMIN E [Concomitant]
     Active Substance: .ALPHA.-TOCOPHEROL
     Indication: PANCREATIC FAILURE
     Dosage: 200 MG, TID
     Route: 048
     Dates: start: 2001
  9. CIPLOX [CIPROFLOXACIN] [Concomitant]
     Active Substance: CIPROFLOXACIN
     Indication: PSEUDOMONAS TEST POSITIVE
     Dosage: 750 MG, BID
     Route: 048
     Dates: start: 20191023, end: 20191107
  10. ZENARO [Concomitant]
     Active Substance: LEVOCETIRIZINE
     Indication: HYPERSENSITIVITY
     Dosage: 1 TABLET, PRN
     Route: 048
     Dates: start: 2010
  11. BEPANTHEN [DEXPANTHENOL] [Concomitant]
     Active Substance: DEXPANTHENOL
     Indication: DERMATITIS
  12. CREON [Concomitant]
     Active Substance: PANCRELIPASE AMYLASE\PANCRELIPASE LIPASE\PANCRELIPASE PROTEASE
     Indication: PANCREATIC FAILURE
     Dosage: 15-16 CAPSULES
     Route: 048
     Dates: start: 2001
  13. URSOSAN [Concomitant]
     Active Substance: URSODIOL
     Indication: LIVER DISORDER
     Dosage: 1 CAPSULE, BID
     Route: 048
     Dates: start: 201203
  14. VENTOLIN [Concomitant]
     Active Substance: ALBUTEROL SULFATE
     Indication: CYSTIC FIBROSIS LUNG
     Dosage: 3 PUFFS
     Dates: start: 2016

REACTIONS (5)
  - Blood creatine phosphokinase increased [Not Recovered/Not Resolved]
  - Pseudomonas infection [Recovered/Resolved]
  - Myoglobin blood increased [Not Recovered/Not Resolved]
  - Alanine aminotransferase increased [Not Recovered/Not Resolved]
  - Aspartate aminotransferase increased [Not Recovered/Not Resolved]

NARRATIVE: CASE EVENT DATE: 201910
